FAERS Safety Report 5132923-2 (Version None)
Quarter: 2006Q4

REPORT INFORMATION
  Report Type: 
  Country: None (occurrence: None)
  Receive Date: 20061023
  Receipt Date: 20061017
  Transmission Date: 20070319
  Serious: Yes (Other)
  Sender: FDA-Public Use
  Company Number: US-JNJFOC-20060307895

PATIENT
  Sex: Male
  Weight: 78.93 kg

DRUGS (8)
  1. RISPERDAL [Suspect]
     Indication: BIPOLAR I DISORDER
  2. ZYPREXA [Suspect]
     Indication: DRUG USE FOR UNKNOWN INDICATION
  3. ZANTAC [Concomitant]
  4. NURETRIN [Concomitant]
  5. ZOCOR [Concomitant]
  6. VALIUM [Concomitant]
  7. VENLAFEXINE [Concomitant]
  8. PANCREASE [Concomitant]

REACTIONS (1)
  - DIABETES MELLITUS INSULIN-DEPENDENT [None]
